FAERS Safety Report 4610122-8 (Version None)
Quarter: 2005Q1

REPORT INFORMATION
  Report Type: 
  Country: None (occurrence: None)
  Receive Date: 20050314
  Receipt Date: 20050228
  Transmission Date: 20050727
  Serious: Yes (Hospitalization)
  Sender: FDA-Public Use
  Company Number: 2005028265

PATIENT
  Weight: 63.5036 kg

DRUGS (9)
  1. ZOLOFT [Suspect]
     Indication: DEPRESSION
     Dosage: 50 MG (50 MG, 1 IN 1 D),
     Dates: start: 20030131, end: 20030226
  2. CONJUGATED ESTROGENS [Concomitant]
  3. CALCIUM (CALCIUM) [Concomitant]
  4. FAMOTIDINE [Concomitant]
  5. MELOXICAM [Concomitant]
  6. DIGOXIN [Concomitant]
  7. ASPIRIN [Concomitant]
  8. LISINOPRIL [Concomitant]
  9. LABETALOL HCL [Concomitant]

REACTIONS (5)
  - AKATHISIA [None]
  - ANXIETY [None]
  - CATATONIA [None]
  - DELIRIUM [None]
  - DEMENTIA [None]
